FAERS Safety Report 13084341 (Version 1)
Quarter: 2017Q1

REPORT INFORMATION
  Report Type: Spontaneous
  Country: US (occurrence: US)
  Receive Date: 20170104
  Receipt Date: 20170104
  Transmission Date: 20170428
  Serious: No
  Sender: FDA-Public Use
  Company Number: None

PATIENT

DRUGS (1)
  1. 0.9% SODIUM CHLORIDE IRRIGATION BAGS [Suspect]
     Active Substance: SODIUM CHLORIDE

REACTIONS (1)
  - Product preparation error [None]
